FAERS Safety Report 25378166 (Version 1)
Quarter: 2025Q2

REPORT INFORMATION
  Report Type: Spontaneous
  Country: US (occurrence: US)
  Receive Date: 20250530
  Receipt Date: 20250530
  Transmission Date: 20250717
  Serious: No
  Sender: VIIV
  Company Number: US-VIIV HEALTHCARE-US2025067535

PATIENT
  Age: 56 Year
  Sex: Male
  Weight: 100.24 kg

DRUGS (1)
  1. DOVATO [Suspect]
     Active Substance: DOLUTEGRAVIR SODIUM\LAMIVUDINE
     Indication: HIV infection
     Dosage: 1 DF, QD, 50 MG OF DOLUTEGRAVIR SODIUM AND 300 MG
     Route: 048

REACTIONS (1)
  - Weight increased [Not Recovered/Not Resolved]
